FAERS Safety Report 4378138-7 (Version None)
Quarter: 2004Q2

REPORT INFORMATION
  Report Type: 
  Country: None (occurrence: None)
  Receive Date: 20040609
  Receipt Date: 20040513
  Transmission Date: 20050107
  Serious: Yes (Life-Threatening, Hospitalization)
  Sender: FDA-Public Use
  Company Number: JP_040503086

PATIENT
  Age: 86 Year
  Sex: Female

DRUGS (11)
  1. VANCOMYCIN [Suspect]
     Indication: STAPHYLOCOCCAL INFECTION
     Dosage: 500 MG/2 DAY
     Dates: start: 20040324, end: 20040408
  2. VANCOMYCIN [Suspect]
     Indication: UPPER RESPIRATORY TRACT INFECTION
     Dosage: 500 MG/2 DAY
     Dates: start: 20040324, end: 20040408
  3. LASIX [Concomitant]
  4. SELBEX (TEPRENONE) [Concomitant]
  5. INCREMIN [Concomitant]
  6. BIOFERMIN [Concomitant]
  7. ASPIRIN [Concomitant]
  8. KALIMATE (CALCIUM POLYSTYRENE SULFONATE) [Concomitant]
  9. LEVOFLOXACIN [Concomitant]
  10. CEFOTIAM HYDROCHLORIDE [Concomitant]
  11. MEROPENEM TRIHYDRATE [Concomitant]

REACTIONS (12)
  - ANAEMIA [None]
  - ASPIRATION BONE MARROW ABNORMAL [None]
  - BLOOD PRESSURE DECREASED [None]
  - BONE MARROW DEPRESSION [None]
  - DRUG LEVEL DECREASED [None]
  - HAEMORRHAGE [None]
  - INFLAMMATION [None]
  - MALNUTRITION [None]
  - MYELODYSPLASTIC SYNDROME [None]
  - PLEOCYTOSIS [None]
  - PSEUDOMONAS INFECTION [None]
  - PYREXIA [None]
